FAERS Safety Report 4504929-5 (Version None)
Quarter: 2004Q4

REPORT INFORMATION
  Report Type: 
  Country: None (occurrence: None)
  Receive Date: 20041020
  Receipt Date: 20040913
  Transmission Date: 20050328
  Serious: No
  Sender: FDA-Public Use
  Company Number: 2004-09-0701

PATIENT

DRUGS (1)
  1. CLARINEX [Suspect]
     Indication: HYPERSENSITIVITY
     Dosage: 1 QD ORAL
     Route: 048

REACTIONS (2)
  - DRUG INEFFECTIVE [None]
  - RHINORRHOEA [None]
